FAERS Safety Report 9474660 (Version 3)
Quarter: 2013Q4

REPORT INFORMATION
  Report Type: Report from Study
  Country: JP (occurrence: JP)
  Receive Date: 20130823
  Receipt Date: 20131004
  Transmission Date: 20140711
  Serious: Yes (Death)
  Sender: FDA-Public Use
  Company Number: JP-B.I. PHARMACEUTICALS,INC./RIDGEFIELD-2013-BI-25248NB

PATIENT
  Age: 62 Year
  Sex: Male
  Weight: 65 kg

DRUGS (9)
  1. MIRAPEX LA [Suspect]
     Indication: PARKINSON^S DISEASE
     Dosage: 2.25 MG
     Route: 048
     Dates: start: 20120404, end: 20120417
  2. MIRAPEX LA [Suspect]
     Dosage: 3 MG
     Route: 048
     Dates: start: 20120418, end: 20120515
  3. MIRAPEX LA [Suspect]
     Dosage: 3.75 MG
     Route: 048
     Dates: start: 20120516, end: 20120626
  4. MIRAPEX LA [Suspect]
     Dosage: 4.5 MG
     Route: 048
     Dates: start: 20120627, end: 20130114
  5. NEODOPASTON [Concomitant]
     Indication: PARKINSON^S DISEASE
     Dosage: 700 MG
     Route: 048
     Dates: end: 2013
  6. HORIZON [Concomitant]
     Indication: PARKINSON^S DISEASE
     Dosage: 2 MG
     Route: 048
     Dates: end: 2013
  7. FP-OD [Concomitant]
     Indication: PARKINSON^S DISEASE
     Dosage: 7.5 MG
     Route: 048
     Dates: end: 2013
  8. COMTAN [Concomitant]
     Indication: PARKINSON^S DISEASE
     Dosage: 300 MG
     Route: 048
     Dates: end: 2013
  9. REQUIP [Concomitant]
     Indication: PARKINSON^S DISEASE
     Dosage: 9 MG
     Route: 048
     Dates: end: 20120404

REACTIONS (1)
  - Death [Fatal]
